FAERS Safety Report 9830939 (Version 2)
Quarter: 2014Q1

REPORT INFORMATION
  Report Type: Spontaneous
  Country: US (occurrence: US)
  Receive Date: 20140120
  Receipt Date: 20140120
  Transmission Date: 20141002
  Serious: No
  Sender: FDA-Public Use
  Company Number: US-MYLANLABS-2013S1015188

PATIENT
  Age: 61 Year
  Sex: Male

DRUGS (7)
  1. COSYNTROPIN FOR INJECTION [Suspect]
     Indication: ADRENAL INSUFFICIENCY
     Route: 042
     Dates: start: 20130619, end: 20130619
  2. PLAVIX [Concomitant]
     Route: 048
  3. GLUCOPHAGE [Concomitant]
     Route: 048
  4. VYTORIN [Concomitant]
     Route: 048
  5. ASPIRIN [Concomitant]
     Route: 048
  6. VITAMIN [Concomitant]
  7. VITAMIN B COMPLEX [Concomitant]

REACTIONS (3)
  - Loss of consciousness [Recovered/Resolved]
  - Rash [Not Recovered/Not Resolved]
  - Nausea [Not Recovered/Not Resolved]
